FAERS Safety Report 9702702 (Version 3)
Quarter: 2014Q2

REPORT INFORMATION
  Report Type: Spontaneous
  Country: JP (occurrence: None)
  Receive Date: 20131120
  Receipt Date: 20140408
  Transmission Date: 20141212
  Serious: Yes (Hospitalization, Disabling)
  Sender: FDA-Public Use
  Company Number: 2013039037

PATIENT
  Age: 68 Year
  Sex: Male

DRUGS (4)
  1. DESMOPRESSIN [Suspect]
     Indication: DIABETES INSIPIDUS
     Dosage: NPUSH DAILY NASAL)
     Route: 045
     Dates: start: 20131101
  2. MINIRIN MELT [Suspect]
     Indication: DIABETES INSIPIDUS
     Route: 048
     Dates: start: 20131026, end: 20131031
  3. MICAMLO [Suspect]
     Indication: HYPERTENSION
     Dosage: TELMISARTAND AND 5 MG AMLODIPINE DAILY DOSE; 1993 START DATE ORAL)
     Route: 048
     Dates: start: 1993, end: 20131107
  4. MYSLEE [Suspect]
     Indication: INSOMNIA
     Route: 048
     Dates: start: 1993, end: 20131107

REACTIONS (8)
  - Hepatic function abnormal [None]
  - Granulocyte count decreased [None]
  - Off label use [None]
  - Aspartate aminotransferase increased [None]
  - Alanine aminotransferase increased [None]
  - Neutrophil count decreased [None]
  - Diabetes insipidus [None]
  - Adrenal insufficiency [None]
